FAERS Safety Report 5973694-7 (Version None)
Quarter: 2008Q4

REPORT INFORMATION
  Report Type: 
  Country: None (occurrence: None)
  Receive Date: 20081201
  Receipt Date: 20081127
  Transmission Date: 20090506
  Serious: Yes (Death)
  Sender: FDA-Public Use
  Company Number: BR-B.I. PHARMACEUTICALS,INC./RIDGEFIELD-2008-BR-00359BR

PATIENT
  Age: 67 Year
  Sex: Female

DRUGS (1)
  1. ATENSINA [Suspect]
     Indication: HYPERTENSION
     Dosage: .4MG
     Route: 048
     Dates: end: 20081003

REACTIONS (5)
  - ABDOMINAL PAIN UPPER [None]
  - ARRHYTHMIA [None]
  - DEPRESSION [None]
  - HYPERTENSION [None]
  - LABYRINTHITIS [None]
